FAERS Safety Report 6749679-X (Version None)
Quarter: 2010Q2

REPORT INFORMATION
  Report Type: 
  Country: None (occurrence: None)
  Receive Date: 20100601
  Receipt Date: 20100524
  Transmission Date: 20101027
  Serious: Yes (Other)
  Sender: FDA-Public Use
  Company Number: B0658037A

PATIENT
  Age: 52 Year
  Sex: Male

DRUGS (9)
  1. FORTUM [Suspect]
     Route: 042
  2. CLOXACILLIN [Concomitant]
  3. METOCLOPRAMIDE [Concomitant]
  4. METOCLOPRAMIDE [Concomitant]
  5. FOLIC ACID [Concomitant]
  6. VITAMIN B COMPLEX CAP [Concomitant]
  7. CALCIUM CARBONATE [Concomitant]
  8. CLOXACILLIN [Concomitant]
  9. ASCORBIC ACID [Concomitant]

REACTIONS (1)
  - CONVULSION [None]
